FAERS Safety Report 20108230 (Version 2)
Quarter: 2021Q4

REPORT INFORMATION
  Report Type: Spontaneous
  Country: PR (occurrence: PR)
  Receive Date: 20211124
  Receipt Date: 20211217
  Transmission Date: 20220303
  Serious: No
  Sender: FDA-Public Use
  Company Number: PR-PFIZER INC-202101429588

PATIENT
  Age: 10 Year
  Sex: Male

DRUGS (1)
  1. GENOTROPIN [Suspect]
     Active Substance: SOMATROPIN
     Indication: Growth hormone deficiency
     Dosage: 1 MG (1MG SUBCUTANEOUS INJECTION 6 DAYS A WEEK)
     Route: 058

REACTIONS (4)
  - Drug dose omission by device [Unknown]
  - Device leakage [Unknown]
  - Device defective [Unknown]
  - Device breakage [Unknown]

NARRATIVE: CASE EVENT DATE: 20211021
